FAERS Safety Report 26010649 (Version 1)
Quarter: 2025Q4

REPORT INFORMATION
  Report Type: Spontaneous
  Country: AL (occurrence: AL)
  Receive Date: 20251107
  Receipt Date: 20251107
  Transmission Date: 20260118
  Serious: Yes (Hospitalization, Other)
  Sender: RANBAXY
  Company Number: AL-SUN PHARMACEUTICAL INDUSTRIES INC-2025R1-534673

PATIENT
  Age: 73 Year
  Sex: Female

DRUGS (14)
  1. DIGOXIN [Suspect]
     Active Substance: DIGOXIN
     Indication: Cardiac failure
     Dosage: 0.25 MILLIGRAM
     Route: 065
  2. DIGOXIN [Suspect]
     Active Substance: DIGOXIN
     Indication: Atrial fibrillation
  3. OLMESARTAN [Suspect]
     Active Substance: OLMESARTAN
     Indication: Cardiac failure
     Dosage: UNK
     Route: 065
  4. OLMESARTAN [Suspect]
     Active Substance: OLMESARTAN
     Indication: Atrial fibrillation
  5. AMLODIPINE [Suspect]
     Active Substance: AMLODIPINE BESYLATE
     Indication: Cardiac failure
     Dosage: UNK
     Route: 065
  6. AMLODIPINE [Suspect]
     Active Substance: AMLODIPINE BESYLATE
     Indication: Atrial fibrillation
  7. HYDROCHLOROTHIAZIDE [Suspect]
     Active Substance: HYDROCHLOROTHIAZIDE
     Indication: Cardiac failure
     Dosage: UNK
     Route: 065
  8. HYDROCHLOROTHIAZIDE [Suspect]
     Active Substance: HYDROCHLOROTHIAZIDE
     Indication: Atrial fibrillation
  9. CARVEDILOL [Suspect]
     Active Substance: CARVEDILOL
     Indication: Cardiac failure
     Dosage: UNK
     Route: 065
  10. CARVEDILOL [Suspect]
     Active Substance: CARVEDILOL
     Indication: Atrial fibrillation
  11. OMEPRAZOLE [Suspect]
     Active Substance: OMEPRAZOLE
     Indication: Cardiac failure
     Dosage: UNK
     Route: 065
  12. OMEPRAZOLE [Suspect]
     Active Substance: OMEPRAZOLE
     Indication: Atrial fibrillation
  13. WARFARIN [Suspect]
     Active Substance: WARFARIN
     Indication: Cardiac failure
     Dosage: UNK
     Route: 065
  14. WARFARIN [Suspect]
     Active Substance: WARFARIN
     Indication: Atrial fibrillation

REACTIONS (8)
  - Phantosmia [Recovered/Resolved]
  - Bradycardia [Recovered/Resolved]
  - Toxicity to various agents [Recovered/Resolved]
  - Hypokalaemia [Recovering/Resolving]
  - Sensory disturbance [Recovered/Resolved]
  - Renal impairment [Recovered/Resolved]
  - Electrolyte imbalance [Recovering/Resolving]
  - Accidental overdose [Unknown]
